FAERS Safety Report 24953121 (Version 1)
Quarter: 2025Q1

REPORT INFORMATION
  Report Type: Spontaneous
  Country: CN (occurrence: CN)
  Receive Date: 20250211
  Receipt Date: 20250211
  Transmission Date: 20250409
  Serious: No
  Sender: ROCHE
  Company Number: CN-ROCHE-10000200974

PATIENT
  Age: 36 Year
  Sex: Female
  Weight: 66 kg

DRUGS (1)
  1. OSELTAMIVIR PHOSPHATE [Suspect]
     Active Substance: OSELTAMIVIR PHOSPHATE
     Indication: Upper respiratory tract infection
     Route: 048
     Dates: start: 20250108, end: 20250113

REACTIONS (2)
  - Rash [Recovering/Resolving]
  - Maternal exposure timing unspecified [Unknown]

NARRATIVE: CASE EVENT DATE: 20250108
